FAERS Safety Report 9312773 (Version 1)
Quarter: 2013Q2

REPORT INFORMATION
  Report Type: Spontaneous
  Country: CN (occurrence: CN)
  Receive Date: 20130528
  Receipt Date: 20130528
  Transmission Date: 20140414
  Serious: Yes (Other)
  Sender: FDA-Public Use
  Company Number: CN-009507513-1305CHN011173

PATIENT
  Sex: Female

DRUGS (2)
  1. MARVELON (IN ROMAN AND CHINESE) [Suspect]
     Dosage: UNK
     Route: 048
  2. MARVELON (IN ROMAN AND CHINESE) [Suspect]
     Dosage: UNK
     Route: 048
     Dates: start: 20130502

REACTIONS (3)
  - Abortion induced [Unknown]
  - Menorrhagia [Not Recovered/Not Resolved]
  - Metrorrhagia [Not Recovered/Not Resolved]
